FAERS Safety Report 25996015 (Version 1)
Quarter: 2025Q4

REPORT INFORMATION
  Report Type: Spontaneous
  Country: US (occurrence: None)
  Receive Date: 20251104
  Receipt Date: 20251104
  Transmission Date: 20260117
  Serious: No
  Sender: INCYTE
  Company Number: US-INCYTE CORPORATION-2025IN011874

PATIENT
  Age: 76 Year

DRUGS (7)
  1. JAKAFI [Suspect]
     Active Substance: RUXOLITINIB
     Indication: Renal cancer
     Dosage: UNK
     Route: 065
  2. JAKAFI [Suspect]
     Active Substance: RUXOLITINIB
     Indication: Prostate cancer
  3. JAKAFI [Suspect]
     Active Substance: RUXOLITINIB
     Indication: Spleen disorder
  4. JAKAFI [Suspect]
     Active Substance: RUXOLITINIB
     Indication: Benign prostatic hyperplasia
  5. JAKAFI [Suspect]
     Active Substance: RUXOLITINIB
     Indication: Lower urinary tract symptoms
  6. CABOMETYX [Suspect]
     Active Substance: CABOZANTINIB S-MALATE
     Indication: Renal cancer
     Dosage: 20 MILLIGRAM, QD
  7. CABOMETYX [Suspect]
     Active Substance: CABOZANTINIB S-MALATE
     Indication: Prostate cancer

REACTIONS (2)
  - Diarrhoea [Unknown]
  - Off label use [Unknown]
